FAERS Safety Report 9797553 (Version 2)
Quarter: 2014Q1

REPORT INFORMATION
  Report Type: Spontaneous
  Country: FR (occurrence: FR)
  Receive Date: 20140106
  Receipt Date: 20140113
  Transmission Date: 20141002
  Serious: Yes (Hospitalization)
  Sender: FDA-Public Use
  Company Number: FR-ROCHE-1328975

PATIENT
  Age: 23 Year
  Sex: Male

DRUGS (4)
  1. VALIUM [Suspect]
     Indication: SUICIDE ATTEMPT
     Route: 065
  2. SERESTA [Suspect]
     Indication: SUICIDE ATTEMPT
     Route: 065
  3. METHADONE [Suspect]
     Indication: PRODUCT USED FOR UNKNOWN INDICATION
     Route: 065
  4. ECSTASY [Concomitant]

REACTIONS (1)
  - Toxicity to various agents [Recovered/Resolved]
